FAERS Safety Report 7783142-2 (Version None)
Quarter: 2011Q3

REPORT INFORMATION
  Report Type: 
  Country: None (occurrence: None)
  Receive Date: 20110928
  Receipt Date: 20110923
  Transmission Date: 20111222
  Serious: Yes (Hospitalization)
  Sender: FDA-Public Use
  Company Number: AU-BRISTOL-MYERS SQUIBB COMPANY-16092819

PATIENT
  Age: 69 Year
  Sex: Male

DRUGS (11)
  1. WARFARIN [Concomitant]
  2. OMEPRAZOLE [Concomitant]
  3. METOPROLOL TARTRATE [Concomitant]
     Dates: start: 20110913
  4. LACTULOSE [Concomitant]
  5. GEMCITABINE [Suspect]
     Indication: NON-SMALL CELL LUNG CANCER
     Route: 065
     Dates: start: 20110701, end: 20110915
  6. CISPLATIN [Suspect]
     Indication: NON-SMALL CELL LUNG CANCER
     Route: 065
     Dates: start: 20110701, end: 20110915
  7. EFFEXOR XR [Concomitant]
  8. COLOXYL + SENNA [Concomitant]
  9. MAGNESIUM [Concomitant]
  10. DIGOXIN [Concomitant]
  11. PERINDOPRIL ERBUMINE [Concomitant]
     Dates: start: 20110915

REACTIONS (1)
  - DYSPNOEA [None]
